FAERS Safety Report 6208476-4 (Version None)
Quarter: 2009Q2

REPORT INFORMATION
  Report Type: 
  Country: None (occurrence: None)
  Receive Date: 20090529
  Receipt Date: 20090520
  Transmission Date: 20091009
  Serious: Yes (Hospitalization)
  Sender: FDA-Public Use
  Company Number: TR-AVENTIS-200912805EU

PATIENT
  Age: 30 Year
  Sex: Female

DRUGS (4)
  1. CLEXANE [Suspect]
     Route: 058
  2. BECOZYME-C [Concomitant]
     Route: 048
  3. FOLBIOL [Concomitant]
     Route: 048
  4. BABYPRIN [Concomitant]
     Route: 048

REACTIONS (2)
  - DRUG EXPOSURE DURING PREGNANCY [None]
  - HAEMOLYTIC ANAEMIA [None]
